FAERS Safety Report 6368368-7 (Version None)
Quarter: 2009Q3

REPORT INFORMATION
  Report Type: 
  Country: None (occurrence: None)
  Receive Date: 20090909
  Receipt Date: 20080620
  Transmission Date: 20100115
  Serious: No
  Sender: FDA-Public Use
  Company Number: 002#2#2008-00529

PATIENT
  Sex: Male
  Weight: 58.9676 kg

DRUGS (4)
  1. ROTIGOTINE [Suspect]
     Indication: PARKINSON'S DISEASE
     Dosage: (6 MG QD, DAILY DOSE:6 MILLIGRAM/24HOURS;UNIT DOSE:6 MILLIGRAM/24HOURS TRANSDERMAL)
     Route: 062
     Dates: start: 20071001, end: 20080601
  2. CARBIDOPA AND LEVODOPA [Concomitant]
  3. AMANTADINE [Concomitant]
  4. MULTI-VITAMINS [Concomitant]

REACTIONS (6)
  - BALANCE DISORDER [None]
  - DYSARTHRIA [None]
  - FALL [None]
  - FATIGUE [None]
  - MUSCULAR WEAKNESS [None]
  - TREMOR [None]
